FAERS Safety Report 7995230-6 (Version None)
Quarter: 2011Q4

REPORT INFORMATION
  Report Type: 
  Country: None (occurrence: None)
  Receive Date: 20111220
  Receipt Date: 20111220
  Transmission Date: 20120403
  Serious: Yes (Hospitalization)
  Sender: FDA-Public Use
  Company Number: None

PATIENT
  Age: 38 Year
  Sex: Male
  Weight: 107.95 kg

DRUGS (2)
  1. BACTRIM [Concomitant]
     Indication: PROPHYLAXIS
     Dosage: 1 TABLET
     Route: 048
     Dates: start: 20111010, end: 20111219
  2. COMPLERA [Suspect]
     Indication: HIV INFECTION
     Dosage: 1 TABLET
     Route: 048
     Dates: start: 20110908, end: 20111231

REACTIONS (8)
  - POLYURIA [None]
  - NAUSEA [None]
  - NIGHT SWEATS [None]
  - FATIGUE [None]
  - URINARY TRACT INFECTION [None]
  - WEIGHT DECREASED [None]
  - VOMITING [None]
  - MYALGIA [None]
